FAERS Safety Report 6998711-7 (Version None)
Quarter: 2010Q3

REPORT INFORMATION
  Report Type: 
  Country: None (occurrence: None)
  Receive Date: 20100920
  Receipt Date: 20091117
  Transmission Date: 20110219
  Serious: No
  Sender: FDA-Public Use
  Company Number: US-ASTRAZENECA-2008UW27405

PATIENT
  Age: 46 Year
  Sex: Female
  Weight: 90.7 kg

DRUGS (4)
  1. SEROQUEL [Suspect]
     Indication: BIPOLAR DISORDER
     Dosage: 25 MG, 100 MG, 200 MG, 300 MG
     Route: 048
     Dates: start: 20030106, end: 20081024
  2. SEROQUEL [Suspect]
     Indication: DEPRESSION
     Dosage: 25 MG, 100 MG, 200 MG, 300 MG
     Route: 048
     Dates: start: 20030106, end: 20081024
  3. ABILIFY [Concomitant]
  4. LITHIUM CARBONATE [Concomitant]
     Dates: start: 20010101, end: 20070101

REACTIONS (2)
  - DIABETES MELLITUS [None]
  - NERVE INJURY [None]
